FAERS Safety Report 9416884 (Version 2)
Quarter: 2015Q4

REPORT INFORMATION
  Report Type: Spontaneous
  Country: CA (occurrence: CA)
  Receive Date: 20130724
  Receipt Date: 20151006
  Transmission Date: 20160305
  Serious: Yes (Hospitalization, Other)
  Sender: FDA-Public Use
  Company Number: CA-ROCHE-1251118

PATIENT
  Age: 12 Year
  Sex: Male
  Weight: 53 kg

DRUGS (22)
  1. VINCRISTINE [Suspect]
     Active Substance: VINCRISTINE
     Dosage: WITH METHROTREXATE
     Route: 042
     Dates: start: 20090306
  2. PROPOFOL. [Concomitant]
     Active Substance: PROPOFOL
     Route: 042
     Dates: start: 20090225
  3. PROPOFOL. [Concomitant]
     Active Substance: PROPOFOL
     Route: 065
  4. SUCRALFATE. [Concomitant]
     Active Substance: SUCRALFATE
     Route: 048
  5. SUPRANE [Concomitant]
     Active Substance: DESFLURANE
     Route: 042
  6. KYTRIL [Suspect]
     Active Substance: GRANISETRON HYDROCHLORIDE
     Indication: VOMITING
     Dosage: THERAPY DURATION WAS 13.0 DAYS
     Route: 048
     Dates: start: 20090227, end: 20090311
  7. PMS-OLANZAPINE [Suspect]
     Active Substance: OLANZAPINE
     Indication: NAUSEA
     Dosage: THERAPY DURATONS WAS 9.0 DAYS
     Route: 048
     Dates: start: 20090227, end: 20090307
  8. PMS-OLANZAPINE [Suspect]
     Active Substance: OLANZAPINE
     Indication: AFFECTIVE DISORDER
  9. METHOTREXATE [Suspect]
     Active Substance: METHOTREXATE
     Route: 037
     Dates: start: 20090225
  10. VINCRISTINE SULFATE. [Concomitant]
     Active Substance: VINCRISTINE SULFATE
     Route: 042
  11. FENTANYL. [Concomitant]
     Active Substance: FENTANYL
     Route: 042
     Dates: start: 20090224
  12. SUCCINYLCHOLINE CHLORIDE. [Concomitant]
     Active Substance: SUCCINYLCHOLINE CHLORIDE
     Route: 042
     Dates: start: 20090224
  13. SEPTRA [Concomitant]
     Active Substance: SULFAMETHOXAZOLE\TRIMETHOPRIM
     Dosage: 2 TABLETS EVERY SATURDAY AND SUNDAY
     Route: 048
  14. PMS-OLANZAPINE [Suspect]
     Active Substance: OLANZAPINE
     Indication: ANXIETY
  15. ONCASPAR [Concomitant]
     Active Substance: PEGASPARGASE
     Route: 030
  16. METHOTREXATE [Suspect]
     Active Substance: METHOTREXATE
     Indication: PRODUCT USED FOR UNKNOWN INDICATION
     Route: 042
  17. VINCRISTINE [Suspect]
     Active Substance: VINCRISTINE
     Indication: PRODUCT USED FOR UNKNOWN INDICATION
     Dosage: WITH PEG
     Route: 042
     Dates: start: 20090225
  18. OMEPRAZOLE. [Concomitant]
     Active Substance: OMEPRAZOLE
     Route: 048
  19. SENOKOT-S [Concomitant]
     Active Substance: DOCUSATE SODIUM\SENNOSIDES
     Dosage: 2 TABLETS EVERY SATURDAY AND SUNDAY
     Route: 065
  20. PMS-OLANZAPINE [Suspect]
     Active Substance: OLANZAPINE
     Indication: DECREASED APPETITE
  21. DOCUSATE SODIUM. [Concomitant]
     Active Substance: DOCUSATE SODIUM
     Route: 048
  22. ROCURONIUM [Concomitant]
     Active Substance: ROCURONIUM BROMIDE
     Route: 042
     Dates: start: 20090224

REACTIONS (31)
  - Neurotoxicity [Unknown]
  - Headache [Unknown]
  - Pyrexia [Recovering/Resolving]
  - Weight decreased [Unknown]
  - Asthenia [Unknown]
  - Vomiting [Unknown]
  - Nausea [Unknown]
  - Anal fissure [Unknown]
  - Emotional distress [Unknown]
  - Abasia [Recovered/Resolved]
  - Tinnitus [Unknown]
  - Myoclonus [Recovering/Resolving]
  - Skin ulcer [Unknown]
  - Blood pressure fluctuation [Recovered/Resolved]
  - Oropharyngeal pain [Unknown]
  - Myalgia [Recovering/Resolving]
  - Serotonin syndrome [Recovering/Resolving]
  - Somnolence [Recovering/Resolving]
  - Sinusitis [Unknown]
  - Malaise [Unknown]
  - Mucous stools [Unknown]
  - Loose tooth [Unknown]
  - Aphasia [Recovered/Resolved]
  - Neuroleptic malignant syndrome [Recovering/Resolving]
  - Fatigue [Unknown]
  - Condition aggravated [Recovered/Resolved]
  - Mental status changes [Recovered/Resolved]
  - Drug ineffective [Unknown]
  - Dizziness [Unknown]
  - Gilbert^s syndrome [Unknown]
  - Diarrhoea [Unknown]

NARRATIVE: CASE EVENT DATE: 20090308
